FAERS Safety Report 7587047-1 (Version None)
Quarter: 2011Q3

REPORT INFORMATION
  Report Type: 
  Country: None (occurrence: None)
  Receive Date: 20110701
  Receipt Date: 20110621
  Transmission Date: 20111222
  Serious: Yes (Other)
  Sender: FDA-Public Use
  Company Number: PHHY2011DE55039

PATIENT
  Age: 66 Year
  Sex: Female

DRUGS (3)
  1. CORTISONE ACETATE [Concomitant]
  2. IBANDRONATE SODIUM [Suspect]
     Route: 042
  3. ZOMETA [Suspect]

REACTIONS (1)
  - OSTEONECROSIS OF JAW [None]
